FAERS Safety Report 6946169-6 (Version None)
Quarter: 2010Q3

REPORT INFORMATION
  Report Type: 
  Country: None (occurrence: None)
  Receive Date: 20100827
  Receipt Date: 20100824
  Transmission Date: 20110219
  Serious: Yes (Hospitalization)
  Sender: FDA-Public Use
  Company Number: US-GILEAD-2010-0031284

PATIENT
  Sex: Male

DRUGS (6)
  1. LETAIRIS [Suspect]
     Indication: PULMONARY ARTERIAL HYPERTENSION
     Route: 048
     Dates: start: 20100304
  2. PROPOXYPHENE NAPSYLATE AND ACETAMINOPHEN [Suspect]
  3. CYMBALTA [Suspect]
  4. REVATIO [Concomitant]
  5. TRANDOLAPRIL [Concomitant]
  6. ZOLPIDEM [Concomitant]

REACTIONS (1)
  - LUNG TRANSPLANT [None]
